FAERS Safety Report 8792819 (Version 1)
Quarter: 2012Q4

REPORT INFORMATION
  Report Type: 
  Country: CA (occurrence: CA)
  Receive Date: 20120918
  Receipt Date: 20120918
  Transmission Date: 20130627
  Serious: Yes (Other)
  Sender: FDA-Public Use
  Company Number: CA-PFIZER INC-2012228252

PATIENT
  Age: 61 Year
  Sex: Female

DRUGS (4)
  1. DILANTIN [Suspect]
     Dosage: UNK
     Dates: start: 2008
  2. DILANTIN [Suspect]
     Dosage: 200 mg, 2x/day (morning and evening)
  3. MULTIVITAMINS [Concomitant]
     Dosage: UNK
  4. VITAMIN C [Concomitant]
     Dosage: UNK

REACTIONS (1)
  - Anticonvulsant drug level increased [Not Recovered/Not Resolved]
